FAERS Safety Report 9451854 (Version 2)
Quarter: 2013Q3

REPORT INFORMATION
  Report Type: Spontaneous
  Country: US (occurrence: US)
  Receive Date: 20130812
  Receipt Date: 20130819
  Transmission Date: 20140515
  Serious: No
  Sender: FDA-Public Use
  Company Number: US-BIOGENIDEC-2013BI072336

PATIENT
  Sex: Female

DRUGS (5)
  1. TYSABRI [Suspect]
     Indication: MULTIPLE SCLEROSIS
     Route: 042
     Dates: start: 20100105, end: 20101206
  2. TYSABRI [Suspect]
     Indication: MULTIPLE SCLEROSIS
     Route: 042
     Dates: start: 20120417, end: 20130611
  3. ABILIFY [Concomitant]
     Indication: DEPRESSION
  4. LORAZEPAM [Concomitant]
     Indication: DEPRESSION
  5. ZOLOFT [Concomitant]
     Indication: DEPRESSION

REACTIONS (4)
  - Gait disturbance [Not Recovered/Not Resolved]
  - Dysphagia [Unknown]
  - Impaired self-care [Unknown]
  - Abasia [Not Recovered/Not Resolved]
